APPROVED DRUG PRODUCT: FLUVASTATIN SODIUM
Active Ingredient: FLUVASTATIN SODIUM
Strength: EQ 40MG BASE
Dosage Form/Route: CAPSULE;ORAL
Application: A078407 | Product #002 | TE Code: AB
Applicant: TEVA PHARMACEUTICALS USA
Approved: Jun 12, 2012 | RLD: No | RS: No | Type: RX